FAERS Safety Report 5673268-1 (Version None)
Quarter: 2008Q2

REPORT INFORMATION
  Report Type: 
  Country: None (occurrence: None)
  Receive Date: 20080219
  Receipt Date: 20071113
  Transmission Date: 20081010
  Serious: No
  Sender: FDA-Public Use
  Company Number: TPA2007A02340

PATIENT
  Age: 43 Year
  Sex: Male

DRUGS (1)
  1. ROZEREM [Suspect]
     Indication: DRUG USE FOR UNKNOWN INDICATION
     Dosage: 8 MG, PER ORAL
     Route: 048

REACTIONS (2)
  - CONDITION AGGRAVATED [None]
  - GYNAECOMASTIA [None]
